FAERS Safety Report 12573208 (Version 1)
Quarter: 2016Q3

REPORT INFORMATION
  Report Type: Spontaneous
  Country: US (occurrence: US)
  Receive Date: 20160720
  Receipt Date: 20160720
  Transmission Date: 20161109
  Serious: No
  Sender: FDA-Public Use
  Company Number: US-TEVA-653601USA

PATIENT
  Sex: Female

DRUGS (1)
  1. TRIAMCINOLONE [Suspect]
     Active Substance: TRIAMCINOLONE
     Indication: NASAL CONGESTION
     Dosage: 55 MCG / 17 G
     Route: 045
     Dates: start: 20160415

REACTIONS (1)
  - Drug ineffective [Unknown]
